FAERS Safety Report 18022316 (Version 1)
Quarter: 2020Q3

REPORT INFORMATION
  Report Type: Other
  Country: FR (occurrence: FR)
  Receive Date: 20200714
  Receipt Date: 20200714
  Transmission Date: 20201103
  Serious: Yes (Hospitalization)
  Sender: FDA-Public Use
  Company Number: FR-INCYTE CORPORATION-2020IN006294

PATIENT

DRUGS (3)
  1. JAKAVI [Suspect]
     Active Substance: RUXOLITINIB
     Indication: GRAFT VERSUS HOST DISEASE
     Dosage: CF COMMENTAIRES
     Route: 048
     Dates: start: 20191217, end: 20200318
  2. VORICONAZOLE OHRE PHARMA [Suspect]
     Active Substance: VORICONAZOLE
     Indication: ANTIFUNGAL PROPHYLAXIS
     Dosage: 400 MG, QD
     Route: 048
     Dates: start: 20200204, end: 20200331
  3. VORICONAZOLE ARROW [Suspect]
     Active Substance: VORICONAZOLE
     Indication: ANTIFUNGAL PROPHYLAXIS
     Dosage: CF COMMENTAIRES
     Route: 041
     Dates: start: 20191213, end: 20200204

REACTIONS (3)
  - Hepatocellular injury [Recovering/Resolving]
  - Cholestasis [Recovering/Resolving]
  - Jaundice [Recovered/Resolved]

NARRATIVE: CASE EVENT DATE: 20200112
